FAERS Safety Report 6945243-8 (Version None)
Quarter: 2010Q3

REPORT INFORMATION
  Report Type: 
  Country: None (occurrence: None)
  Receive Date: 20100827
  Receipt Date: 20100625
  Transmission Date: 20110219
  Serious: No
  Sender: FDA-Public Use
  Company Number: US-KINGPHARMUSA00001-K201000802

PATIENT
  Sex: Female
  Weight: 68.027 kg

DRUGS (6)
  1. FLECTOR [Suspect]
     Indication: ARTHRALGIA
     Dosage: 1 PATCH, QHS,
     Route: 061
     Dates: start: 20091101, end: 20091201
  2. FLECTOR [Suspect]
     Dosage: UNK PATCH, PRN
     Route: 061
     Dates: start: 20091201
  3. PLAQUENIL [Concomitant]
     Indication: ARTHRITIS
  4. COREG [Concomitant]
     Indication: HYPERTENSION
  5. AZULFIDINE [Concomitant]
     Indication: ARTHRITIS
     Dosage: UNK
     Dates: end: 20100401
  6. MULTI-VITAMIN [Concomitant]

REACTIONS (3)
  - ALOPECIA [None]
  - PRURITUS [None]
  - RASH [None]
